FAERS Safety Report 15739701 (Version 1)
Quarter: 2018Q4

REPORT INFORMATION
  Report Type: Spontaneous
  Country: JP (occurrence: JP)
  Receive Date: 20181219
  Receipt Date: 20181219
  Transmission Date: 20190205
  Serious: Yes (Life-Threatening, Other)
  Sender: FDA-Public Use
  Company Number: JP-TEVA-201812_00002709

PATIENT
  Age: 73 Year
  Sex: Male
  Weight: 84 kg

DRUGS (21)
  1. CLOPIDOGREL [Suspect]
     Active Substance: CLOPIDOGREL BISULFATE
     Indication: MYOCARDIAL ISCHAEMIA
     Dosage: 75 MILLIGRAM DAILY;
     Route: 048
     Dates: start: 20180517, end: 20180928
  2. FUROSEMIDE. [Concomitant]
     Active Substance: FUROSEMIDE
     Dosage: 40 MILLIGRAM DAILY;
     Route: 065
     Dates: start: 20180517, end: 20180925
  3. VALSARTAN. [Concomitant]
     Active Substance: VALSARTAN
     Dosage: 40 MILLIGRAM DAILY;
     Route: 065
     Dates: start: 20180517, end: 20180928
  4. ATORVASTATIN [Concomitant]
     Active Substance: ATORVASTATIN
     Dosage: 10 MILLIGRAM DAILY;
     Route: 065
     Dates: start: 20180517
  5. URIEF [Concomitant]
     Active Substance: SILODOSIN
     Dosage: 8 MILLIGRAM DAILY;
     Route: 065
     Dates: start: 20180517
  6. OLOPATADINE HYDROCHLORIDE. [Concomitant]
     Active Substance: OLOPATADINE HYDROCHLORIDE
     Dosage: 10 MILLIGRAM DAILY;
     Route: 065
     Dates: start: 20180921
  7. ALLOPURINOL. [Concomitant]
     Active Substance: ALLOPURINOL
     Dosage: 200 MILLIGRAM DAILY;
     Route: 065
     Dates: start: 20180517
  8. CEFTAZIDIME HYDRATE [Suspect]
     Active Substance: CEFTAZIDIME
     Indication: CELLULITIS
     Dosage: 2 GRAM DAILY;
     Route: 042
     Dates: start: 20180928, end: 20181003
  9. KAYTWO [Concomitant]
     Active Substance: MENATETRENONE
     Route: 042
  10. CEFTRIAXONE NA FOR I.V. INJECTION 1G TEVA [Suspect]
     Active Substance: CEFTRIAXONE SODIUM
     Indication: CELLULITIS
     Dosage: 2 GRAM DAILY;
     Route: 042
     Dates: start: 20180915, end: 20180919
  11. TRAZENTA [Concomitant]
     Active Substance: LINAGLIPTIN
     Dosage: 5 MILLIGRAM DAILY;
     Route: 065
     Dates: start: 20180517
  12. SAMSCA [Concomitant]
     Active Substance: TOLVAPTAN
     Dosage: 7.5 MILLIGRAM DAILY;
     Route: 065
     Dates: start: 20180517, end: 20180925
  13. KALISERUM [Concomitant]
     Dosage: 5 GRAM DAILY;
     Route: 065
     Dates: start: 20180517
  14. ISOSORBIDE DINITRATE. [Concomitant]
     Active Substance: ISOSORBIDE DINITRATE
     Dosage: 40 MILLIGRAM DAILY;
     Route: 065
     Dates: start: 20180517
  15. VANCOMYCIN HYDROCHLORIDE. [Concomitant]
     Active Substance: VANCOMYCIN HYDROCHLORIDE
     Dosage: 1 GRAM DAILY;
     Route: 065
     Dates: start: 20180919, end: 20180925
  16. SODIUM FERROUS CITRATE [Concomitant]
     Active Substance: SODIUM FERROUS CITRATE
     Dosage: 200 MILLIGRAM DAILY;
     Route: 065
     Dates: start: 20180517
  17. WARFARIN [Suspect]
     Active Substance: WARFARIN
     Indication: ATRIAL FIBRILLATION
     Dosage: 3 MILLIGRAM DAILY;
     Route: 048
     Dates: start: 20180517, end: 20180928
  18. MEROPEN [Concomitant]
     Active Substance: MEROPENEM
     Dosage: 3 GRAM DAILY;
     Route: 065
     Dates: start: 20180919, end: 20180925
  19. MAINTATE [Concomitant]
     Active Substance: BISOPROLOL FUMARATE
     Dosage: 2.5 MILLIGRAM DAILY;
     Route: 065
     Dates: start: 20180517
  20. TAKECAB [Concomitant]
     Active Substance: VONOPRAZAN FUMURATE
     Dosage: 20 MILLIGRAM DAILY;
     Route: 065
     Dates: start: 20180517
  21. CALONAL [Concomitant]
     Active Substance: ACETAMINOPHEN
     Dosage: 1500 MILLIGRAM DAILY;
     Route: 065
     Dates: start: 20180919, end: 20181003

REACTIONS (2)
  - Haemorrhagic anaemia [Recovered/Resolved]
  - Retroperitoneal haematoma [Recovering/Resolving]

NARRATIVE: CASE EVENT DATE: 20180929
